FAERS Safety Report 24191984 (Version 1)
Quarter: 2024Q3

REPORT INFORMATION
  Report Type: Spontaneous
  Country: IN (occurrence: IN)
  Receive Date: 20240809
  Receipt Date: 20240809
  Transmission Date: 20241017
  Serious: Yes (Other)
  Sender: Unknown Manufacturer
  Company Number: IN-KOANAAP-SML-IN-2024-00783

PATIENT
  Age: 48 Year
  Sex: Female

DRUGS (3)
  1. DASATINIB [Suspect]
     Active Substance: DASATINIB
     Indication: Myeloproliferative neoplasm
     Route: 065
  2. AZACITIDINE [Suspect]
     Active Substance: AZACITIDINE
     Indication: Myeloproliferative neoplasm
     Dosage: INJECTION (7 DAYS)
     Route: 058
  3. SORAFENIB [Suspect]
     Active Substance: SORAFENIB
     Indication: Myeloproliferative neoplasm
     Route: 065

REACTIONS (2)
  - Drug ineffective [Unknown]
  - White blood cell count increased [Recovered/Resolved]
